FAERS Safety Report 5585146-7 (Version None)
Quarter: 2008Q1

REPORT INFORMATION
  Report Type: 
  Country: None (occurrence: None)
  Receive Date: 20080104
  Receipt Date: 20080104
  Transmission Date: 20080703
  Serious: Yes (Hospitalization)
  Sender: FDA-Public Use
  Company Number: None

PATIENT
  Age: 71 Year
  Sex: Female

DRUGS (16)
  1. FERRLECIT [Suspect]
     Indication: IRON DEFICIENCY
     Dosage: ONCE  IV
     Route: 042
     Dates: start: 20070810, end: 20070810
  2. LOPRESSOR [Concomitant]
  3. CYMBALTA [Concomitant]
  4. SEROQUEL [Concomitant]
  5. LEVAQUIN [Concomitant]
  6. COUMADIN [Concomitant]
  7. LIDODERM [Concomitant]
  8. ASPIRIN [Concomitant]
  9. ISOSORBIDE DINITRATE [Concomitant]
  10. NEXIUM [Concomitant]
  11. ZETIA [Concomitant]
  12. LYRICA [Concomitant]
  13. NEPHROCAPS [Concomitant]
  14. SENNA [Concomitant]
  15. PRANDIN [Concomitant]
  16. LEVOXYL [Concomitant]

REACTIONS (1)
  - ANAPHYLACTIC REACTION [None]
